FAERS Safety Report 15656531 (Version 1)
Quarter: 2018Q4

REPORT INFORMATION
  Report Type: Spontaneous
  Country: US (occurrence: US)
  Receive Date: 20181115
  Receipt Date: 20181115
  Transmission Date: 20190205
  Serious: Yes (Hospitalization)
  Sender: FDA-Public Use
  Company Number: None

PATIENT
  Age: 39 Year
  Sex: Male
  Weight: 91.63 kg

DRUGS (1)
  1. ERLOTINIB [Suspect]
     Active Substance: ERLOTINIB
     Indication: LUNG NEOPLASM MALIGNANT
     Dates: start: 20180901, end: 20181022

REACTIONS (5)
  - Therapy cessation [None]
  - Pain [None]
  - Rash pustular [None]
  - Staphylococcal skin infection [None]
  - Rash [None]

NARRATIVE: CASE EVENT DATE: 20181022
